FAERS Safety Report 5419418-3 (Version None)
Quarter: 2007Q3

REPORT INFORMATION
  Report Type: 
  Country: None (occurrence: None)
  Receive Date: 20070820
  Receipt Date: 20070816
  Transmission Date: 20080115
  Serious: Yes (Death)
  Sender: FDA-Public Use
  Company Number: A0671304A

PATIENT
  Age: 86 Year
  Sex: Male

DRUGS (1)
  1. SERETIDE [Suspect]
     Route: 055

REACTIONS (1)
  - DEATH [None]
